FAERS Safety Report 21058226 (Version 1)
Quarter: 2022Q3

REPORT INFORMATION
  Report Type: Other
  Country: GB (occurrence: GB)
  Receive Date: 20220708
  Receipt Date: 20220708
  Transmission Date: 20221027
  Serious: Yes (Hospitalization, Disabling, Other)
  Sender: FDA-Public Use
  Company Number: GB-MHRA-MED-202206271906599300-VKNLY

PATIENT

DRUGS (1)
  1. MOMETASONE FUROATE [Suspect]
     Active Substance: MOMETASONE FUROATE
     Indication: Hand dermatitis
     Dosage: UNK
     Route: 061
     Dates: start: 20170501, end: 20211124

REACTIONS (1)
  - Neuropathy peripheral [Not Recovered/Not Resolved]
